FAERS Safety Report 7444225-X (Version None)
Quarter: 2011Q2

REPORT INFORMATION
  Report Type: 
  Country: None (occurrence: None)
  Receive Date: 20110429
  Receipt Date: 20101213
  Transmission Date: 20111010
  Serious: Yes (Hospitalization)
  Sender: FDA-Public Use
  Company Number: US-BAYER-201038255NA

PATIENT
  Age: 42 Year
  Sex: Female
  Weight: 85.714 kg

DRUGS (5)
  1. YASMIN [Suspect]
     Indication: ACNE
     Route: 048
     Dates: start: 20090819, end: 20091027
  2. TETRACYCLINE [Concomitant]
     Indication: ACNE
  3. SIMVASTATIN [Concomitant]
     Indication: BLOOD CHOLESTEROL INCREASED
     Dosage: UNK
     Dates: start: 20080801, end: 20091101
  4. VITAMINS NOS [Concomitant]
  5. TRAMADOL [Concomitant]

REACTIONS (2)
  - PULMONARY EMBOLISM [None]
  - DEEP VEIN THROMBOSIS [None]
